FAERS Safety Report 23803369 (Version 6)
Quarter: 2025Q3

REPORT INFORMATION
  Report Type: Spontaneous
  Country: EU (occurrence: EU)
  Receive Date: 20240501
  Receipt Date: 20250910
  Transmission Date: 20251021
  Serious: Yes (Hospitalization, Other)
  Sender: VERTEX
  Company Number: EU-VERTEX PHARMACEUTICALS-2024-007371

PATIENT
  Age: 11 Year
  Sex: Male
  Weight: 30 kg

DRUGS (24)
  1. ELEXACAFTOR\IVACAFTOR\TEZACAFTOR [Interacting]
     Active Substance: ELEXACAFTOR\IVACAFTOR\TEZACAFTOR
     Indication: Cystic fibrosis
     Route: 048
     Dates: start: 20220211, end: 2022
  2. ELEXACAFTOR\IVACAFTOR\TEZACAFTOR [Interacting]
     Active Substance: ELEXACAFTOR\IVACAFTOR\TEZACAFTOR
     Dosage: 75 MG IVACAFTOR/ 50 MG TEZACAFTOR/ 100 MG ELEXACAFTOR, 2 TABS IN MORNING
     Route: 048
     Dates: start: 20221114, end: 20240415
  3. ELEXACAFTOR\IVACAFTOR\TEZACAFTOR [Interacting]
     Active Substance: ELEXACAFTOR\IVACAFTOR\TEZACAFTOR
     Dosage: 37.5MG IVACAFTOR/25MG TEZACAFTOR/50MG ELEXACAFTOR, 1 TAB DAILY
     Route: 048
     Dates: start: 202501, end: 2025
  4. ELEXACAFTOR\IVACAFTOR\TEZACAFTOR [Interacting]
     Active Substance: ELEXACAFTOR\IVACAFTOR\TEZACAFTOR
     Route: 048
     Dates: start: 202503
  5. KALYDECO [Interacting]
     Active Substance: IVACAFTOR
     Indication: Cystic fibrosis
     Route: 048
     Dates: start: 20220211, end: 20240415
  6. KALYDECO [Interacting]
     Active Substance: IVACAFTOR
     Route: 048
     Dates: start: 202503
  7. FUSIDIC ACID [Interacting]
     Active Substance: FUSIDIC ACID
     Indication: Product used for unknown indication
     Route: 048
     Dates: start: 2022
  8. FUSIDIC ACID [Interacting]
     Active Substance: FUSIDIC ACID
     Route: 048
     Dates: start: 2023
  9. FUSIDIC ACID [Interacting]
     Active Substance: FUSIDIC ACID
     Route: 048
     Dates: start: 20240330
  10. FLUCLOXACILLIN [Concomitant]
     Active Substance: FLUCLOXACILLIN
     Dates: start: 2022
  11. FLUCLOXACILLIN [Concomitant]
     Active Substance: FLUCLOXACILLIN
     Dates: start: 2023
  12. FLUCLOXACILLIN [Concomitant]
     Active Substance: FLUCLOXACILLIN
     Dates: start: 20240330
  13. CREON [Concomitant]
     Active Substance: PANCRELIPASE AMYLASE\PANCRELIPASE LIPASE\PANCRELIPASE PROTEASE
     Indication: Pancreatic failure
  14. BECLOMETHASONE DIPROPIONATE [Concomitant]
     Active Substance: BECLOMETHASONE DIPROPIONATE
     Indication: Asthma
     Dates: start: 2021
  15. INNOVAIR [Concomitant]
     Active Substance: BECLOMETHASONE DIPROPIONATE\FORMOTEROL
     Indication: Asthma
     Dosage: 1 DOSAGE FORM, QD
     Dates: start: 20230805
  16. PULMOZYME [Concomitant]
     Active Substance: DORNASE ALFA
     Indication: Mucolytic treatment
     Dates: start: 2017
  17. FLUTICASONE FUROATE [Concomitant]
     Active Substance: FLUTICASONE FUROATE
     Indication: Seasonal allergy
     Dates: start: 2019
  18. MONTELUKAST [Concomitant]
     Active Substance: MONTELUKAST
     Indication: Asthma
  19. MIDAZOLAM [Concomitant]
     Active Substance: MIDAZOLAM
     Indication: Status epilepticus
  20. MIDAZOLAM [Concomitant]
     Active Substance: MIDAZOLAM
     Indication: Papilloedema
  21. MIDAZOLAM [Concomitant]
     Active Substance: MIDAZOLAM
     Indication: Vomiting
  22. MIDAZOLAM [Concomitant]
     Active Substance: MIDAZOLAM
     Indication: Altered state of consciousness
  23. MIDAZOLAM [Concomitant]
     Active Substance: MIDAZOLAM
     Indication: Idiopathic intracranial hypertension
  24. MIDAZOLAM [Concomitant]
     Active Substance: MIDAZOLAM
     Indication: Headache

REACTIONS (7)
  - Drug interaction [Unknown]
  - Papilloedema [Recovered/Resolved]
  - Status epilepticus [Recovered/Resolved]
  - Idiopathic intracranial hypertension [Recovered/Resolved]
  - Altered state of consciousness [Recovered/Resolved]
  - Vomiting [Recovered/Resolved]
  - Headache [Recovered/Resolved]

NARRATIVE: CASE EVENT DATE: 20240404
